FAERS Safety Report 24085383 (Version 2)
Quarter: 2024Q3

REPORT INFORMATION
  Report Type: Report from Study
  Country: IN (occurrence: IN)
  Receive Date: 20240712
  Receipt Date: 20240927
  Transmission Date: 20241017
  Serious: Yes (Death, Hospitalization, Other)
  Sender: GLAXOSMITHKLINE
  Company Number: IN-GLAXOSMITHKLINE-IN2023APC136591

PATIENT

DRUGS (3)
  1. MEPOLIZUMAB [Suspect]
     Active Substance: MEPOLIZUMAB
     Indication: Asthma
     Dosage: 100 MG, Q4W
     Route: 058
  2. MEPOLIZUMAB [Suspect]
     Active Substance: MEPOLIZUMAB
     Dosage: 100 MG, Q4W
     Route: 058
     Dates: start: 20240212
  3. MEPOLIZUMAB [Suspect]
     Active Substance: MEPOLIZUMAB
     Indication: Asthma
     Dosage: 100 MG, Q4W
     Route: 058
     Dates: start: 20230406, end: 20240801

REACTIONS (18)
  - Death [Fatal]
  - Myocardial infarction [Unknown]
  - Blood pressure abnormal [Unknown]
  - Electrocardiogram change [Unknown]
  - Rectal haemorrhage [Recovered/Resolved]
  - Diarrhoea [Unknown]
  - Dehydration [Unknown]
  - Pain in extremity [Unknown]
  - Furuncle [Recovered/Resolved]
  - Gait inability [Recovered/Resolved]
  - Dermatitis allergic [Recovered/Resolved]
  - Purulent discharge [Recovered/Resolved]
  - Asthma [Unknown]
  - Asthenia [Recovering/Resolving]
  - Haemoglobin decreased [Unknown]
  - Malaise [Unknown]
  - Expired product administered [Unknown]
  - Product dose omission issue [Unknown]

NARRATIVE: CASE EVENT DATE: 20231001
